FAERS Safety Report 4623001-7 (Version None)
Quarter: 2005Q1

REPORT INFORMATION
  Report Type: 
  Country: None (occurrence: None)
  Receive Date: 20050329
  Receipt Date: 20050315
  Transmission Date: 20050727
  Serious: Yes (Life-Threatening, Hospitalization)
  Sender: FDA-Public Use
  Company Number: 12897682

PATIENT
  Age: 66 Year
  Sex: Female

DRUGS (3)
  1. CEFADROXIL (CEFADROXIL MONOHYDRATE) [Suspect]
     Dosage: ORAL
     Route: 048
  2. TRIMETHOPRIM [Concomitant]
  3. OXYTETRACYCLINE [Concomitant]

REACTIONS (2)
  - ASCITES [None]
  - HEPATITIS [None]
